FAERS Safety Report 8778260 (Version 2)
Quarter: 2014Q2

REPORT INFORMATION
  Report Type: Report from Study
  Country: GB (occurrence: GB)
  Receive Date: 20120912
  Receipt Date: 20140421
  Transmission Date: 20141212
  Serious: Yes (Death, Other)
  Sender: FDA-Public Use
  Company Number: GB-ROCHE-1123850

PATIENT
  Age: 74 Year
  Sex: Female
  Weight: 46 kg

DRUGS (13)
  1. RITUXIMAB [Suspect]
     Indication: RHEUMATOID ARTHRITIS
     Route: 065
     Dates: start: 20110614, end: 20110629
  2. OXYNORM [Concomitant]
     Route: 065
  3. SERETIDE [Concomitant]
     Dosage: 1 PUFF
     Route: 065
  4. SALBUTAMOL [Concomitant]
     Dosage: 2 PUFF
     Route: 065
  5. AZITHROMYCIN [Concomitant]
     Route: 065
  6. CARBOCISTEINE [Concomitant]
     Route: 065
  7. SPIRIVA [Concomitant]
     Route: 065
  8. ADCAL (CALCIUM CARBONATE) [Concomitant]
     Dosage: D3
     Route: 065
  9. PREDNISOLONE [Concomitant]
     Route: 065
  10. RISEDRONATE [Concomitant]
     Route: 065
  11. CLEXANE [Concomitant]
     Route: 058
  12. PHENOXYMETHYLPENICILLIN [Concomitant]
     Indication: TONSILLITIS
     Route: 065
  13. OXYCONTIN [Concomitant]
     Route: 065

REACTIONS (1)
  - Lung neoplasm malignant [Fatal]
